FAERS Safety Report 5010175-1 (Version None)
Quarter: 2006Q2

REPORT INFORMATION
  Report Type: 
  Country: None (occurrence: None)
  Receive Date: 20060404
  Receipt Date: 20051214
  Transmission Date: 20061013
  Serious: No
  Sender: FDA-Public Use
  Company Number: US200512002454

PATIENT
  Sex: Male

DRUGS (1)
  1. CYMBALTA [Suspect]
     Indication: DEPRESSION
     Dosage: 90 MG
     Dates: start: 20040101, end: 20050101

REACTIONS (4)
  - HEAD DISCOMFORT [None]
  - INSOMNIA [None]
  - MIDDLE INSOMNIA [None]
  - NIGHTMARE [None]
